FAERS Safety Report 15985134 (Version 2)
Quarter: 2020Q2

REPORT INFORMATION
  Report Type: Spontaneous
  Country: AU (occurrence: AU)
  Receive Date: 20190220
  Receipt Date: 20200513
  Transmission Date: 20200713
  Serious: Yes (Hospitalization, Other)
  Sender: FDA-Public Use
  Company Number: AU-009507513-1902AUS005271

PATIENT
  Age: 61 Year
  Sex: Male
  Weight: 133 kg

DRUGS (4)
  1. SUBOXONE [Concomitant]
     Active Substance: BUPRENORPHINE HYDROCHLORIDE\NALOXONE HYDROCHLORIDE
     Indication: DRUG DEPENDENCE
     Dosage: ROUTE: SUB
  2. CANNABIS SATIVA OIL [Concomitant]
     Active Substance: CANNABIS SATIVA SUBSP. INDICA TOP
     Dosage: 0.5-1 GRAM
  3. ZEPATIER [Suspect]
     Active Substance: ELBASVIR\GRAZOPREVIR
     Indication: HEPATITIS C
     Dosage: 1 TABLET DAILY
     Route: 048
     Dates: start: 20180930, end: 20181002
  4. AVANZA [Concomitant]
     Active Substance: MIRTAZAPINE
     Dosage: 30 MILLIGRAM, PRN
     Route: 048

REACTIONS (3)
  - Pain [Recovered/Resolved]
  - Arthralgia [Recovered/Resolved]
  - Acute kidney injury [Unknown]

NARRATIVE: CASE EVENT DATE: 20181002
